FAERS Safety Report 7469691-5 (Version None)
Quarter: 2011Q2

REPORT INFORMATION
  Report Type: 
  Country: None (occurrence: None)
  Receive Date: 20110510
  Receipt Date: 20110502
  Transmission Date: 20111010
  Serious: Yes (Other)
  Sender: FDA-Public Use
  Company Number: DE-BRISTOL-MYERS SQUIBB COMPANY-15710163

PATIENT
  Sex: Male

DRUGS (2)
  1. ETOPOSIDE [Suspect]
     Indication: MEDULLOBLASTOMA
     Dosage: CHEMOTHERAPY INTENSIFIED WITH ETOPOSIDE 500 MG/M2 FOR THREE DAYS.
  2. CARBOPLATIN [Suspect]
     Indication: MEDULLOBLASTOMA
     Dosage: CHEMOTHERAPY INTENSIFIED WITH CARBOPLATIN 500 MG/M2.

REACTIONS (5)
  - DEAFNESS [None]
  - ABDOMINAL PAIN UPPER [None]
  - NAUSEA [None]
  - VOMITING [None]
  - TINNITUS [None]
